FAERS Safety Report 14800107 (Version 1)
Quarter: 2018Q2

REPORT INFORMATION
  Report Type: Spontaneous
  Country: US (occurrence: US)
  Receive Date: 20180416
  Receipt Date: 20180416
  Transmission Date: 20180711
  Serious: No
  Sender: FDA-Public Use
  Company Number: None

PATIENT
  Age: 63 Year
  Sex: Female

DRUGS (1)
  1. CAPECITABINE TAB 500 MG [Suspect]
     Active Substance: CAPECITABINE

REACTIONS (6)
  - Disturbance in attention [None]
  - Skin fissures [None]
  - Diarrhoea [None]
  - Skin haemorrhage [None]
  - Memory impairment [None]
  - Dry skin [None]

NARRATIVE: CASE EVENT DATE: 20180416
